FAERS Safety Report 16148701 (Version 1)
Quarter: 2019Q2

REPORT INFORMATION
  Report Type: Report from Study
  Country: KW (occurrence: KW)
  Receive Date: 20190402
  Receipt Date: 20190402
  Transmission Date: 20190711
  Serious: Yes (Other)
  Sender: FDA-Public Use
  Company Number: PHHY2019KW070779

PATIENT
  Age: 44 Year
  Sex: Female

DRUGS (1)
  1. TYKERB [Suspect]
     Active Substance: LAPATINIB DITOSYLATE
     Indication: BREAST CANCER
     Dosage: 1250 MG, UNK
     Route: 048
     Dates: start: 20180301

REACTIONS (1)
  - Inflammation [Recovering/Resolving]

NARRATIVE: CASE EVENT DATE: 201903
